FAERS Safety Report 9226087 (Version 1)
Quarter: 2013Q2

REPORT INFORMATION
  Report Type: Spontaneous
  Country: US (occurrence: US)
  Receive Date: 20130411
  Receipt Date: 20130411
  Transmission Date: 20140414
  Serious: Yes (Hospitalization)
  Sender: FDA-Public Use
  Company Number: US-ABBOTT-13P-163-1072975-00

PATIENT
  Age: 82 Year
  Sex: Male

DRUGS (7)
  1. LUPRON DEPOT [Suspect]
     Indication: PROSTATE CANCER
     Route: 050
     Dates: start: 20051019, end: 20060119
  2. LUPRON DEPOT [Suspect]
     Route: 050
     Dates: start: 20080618, end: 20080618
  3. LUPRON DEPOT [Suspect]
     Route: 050
     Dates: start: 20090622, end: 20090622
  4. LUPRON DEPOT [Suspect]
     Route: 050
     Dates: start: 2011, end: 2011
  5. LUPRON DEPOT [Suspect]
     Indication: PROSTATE CANCER
     Route: 050
     Dates: start: 20100211, end: 20100211
  6. LUPRON DEPOT [Suspect]
     Indication: PROSTATE CANCER
     Route: 050
     Dates: start: 201204, end: 201206
  7. NORVASC [Concomitant]
     Indication: PRODUCT USED FOR UNKNOWN INDICATION

REACTIONS (5)
  - Thrombosis [Recovered/Resolved]
  - Pulmonary embolism [Recovered/Resolved]
  - Local swelling [Recovering/Resolving]
  - Ligament sprain [Recovered/Resolved]
  - Mobility decreased [Recovered/Resolved]
